FAERS Safety Report 20574214 (Version 2)
Quarter: 2022Q1

REPORT INFORMATION
  Report Type: Spontaneous
  Country: GB (occurrence: GB)
  Receive Date: 20220309
  Receipt Date: 20220322
  Transmission Date: 20220424
  Serious: Yes (Life-Threatening)
  Sender: FDA-Public Use
  Company Number: GB-MHRA-MED-202202251156503420-LUBHH

PATIENT
  Age: 64 Year
  Sex: Female
  Weight: 80 kg

DRUGS (1)
  1. PACLITAXEL [Suspect]
     Active Substance: PACLITAXEL
     Indication: Ovarian cancer
     Dosage: 336MG IN 500ML OF NACL 0.9% EVERY 21 DAYS
     Route: 042
     Dates: start: 20220224, end: 20220224

REACTIONS (6)
  - Hypersensitivity [Recovered/Resolved]
  - Feeling hot [Unknown]
  - Blood pressure increased [Unknown]
  - Chest pain [Unknown]
  - Cold sweat [Unknown]
  - Heart rate increased [Unknown]

NARRATIVE: CASE EVENT DATE: 20220224
